FAERS Safety Report 24308119 (Version 1)
Quarter: 2024Q3

REPORT INFORMATION
  Report Type: Other
  Country: US (occurrence: US)
  Receive Date: 20240911
  Receipt Date: 20240911
  Transmission Date: 20241016
  Serious: No
  Sender: SIGMA TAU
  Company Number: US-LEADIANT BIOSCIENCES, INC.-2024LBI000060

PATIENT
  Sex: Male

DRUGS (1)
  1. MATULANE [Suspect]
     Active Substance: PROCARBAZINE HYDROCHLORIDE
     Indication: Non-Hodgkin^s lymphoma
     Dosage: 50 MILLIGRAMS, 4 CAPSULES (200MG TOTAL) DAILY ON DAYS 1 TO 7, THEN 3 WEEKS OFF
     Route: 048
     Dates: start: 20231201

REACTIONS (3)
  - Dysuria [Unknown]
  - Vision blurred [Unknown]
  - Arthralgia [Unknown]
